FAERS Safety Report 24999579 (Version 1)
Quarter: 2025Q1

REPORT INFORMATION
  Report Type: Spontaneous
  Country: US (occurrence: US)
  Receive Date: 20250222
  Receipt Date: 20250222
  Transmission Date: 20250408
  Serious: No
  Sender: SANOFI AVENTIS
  Company Number: US-SA-2025SA049480

PATIENT
  Age: 67 Year
  Sex: Female

DRUGS (14)
  1. DUPIXENT [Suspect]
     Active Substance: DUPILUMAB
     Indication: Asthma
     Route: 058
     Dates: start: 20250114, end: 20250114
  2. DUPIXENT [Suspect]
     Active Substance: DUPILUMAB
     Dosage: 300 MG, QOW
     Route: 058
     Dates: start: 202501
  3. AMITRIPTYLINE [Concomitant]
     Active Substance: AMITRIPTYLINE
  4. ARFORMOTEROL TARTRATE [Concomitant]
     Active Substance: ARFORMOTEROL TARTRATE
  5. ATORVASTATIN [Concomitant]
     Active Substance: ATORVASTATIN
  6. BUDESONIDE [Concomitant]
     Active Substance: BUDESONIDE
  7. CLOPIDOGREL [Concomitant]
     Active Substance: CLOPIDOGREL BISULFATE
  8. ESCITALOPRAM [Concomitant]
     Active Substance: ESCITALOPRAM OXALATE
  9. EZETIMIBE [Concomitant]
     Active Substance: EZETIMIBE
  10. MEMANTINE [Concomitant]
     Active Substance: MEMANTINE
  11. QULIPTA [Concomitant]
     Active Substance: ATOGEPANT
  12. PROCHLORPERAZINE [Concomitant]
     Active Substance: PROCHLORPERAZINE
  13. ARFORMOTEROL [Concomitant]
     Active Substance: ARFORMOTEROL
  14. SPIRIVA RESPIMAT [Concomitant]
     Active Substance: TIOTROPIUM BROMIDE

REACTIONS (4)
  - Gastrooesophageal reflux disease [Not Recovered/Not Resolved]
  - Cough [Not Recovered/Not Resolved]
  - Bronchitis [Not Recovered/Not Resolved]
  - Sleep disorder due to a general medical condition [Not Recovered/Not Resolved]

NARRATIVE: CASE EVENT DATE: 20240201
